FAERS Safety Report 15979430 (Version 1)
Quarter: 2019Q1

REPORT INFORMATION
  Report Type: Spontaneous
  Country: US (occurrence: US)
  Receive Date: 20190219
  Receipt Date: 20190219
  Transmission Date: 20190418
  Serious: No
  Sender: FDA-Public Use
  Company Number: US-PFIZER INC-2019069804

PATIENT
  Age: 35 Year
  Sex: Female

DRUGS (1)
  1. XELJANZ [Suspect]
     Active Substance: TOFACITINIB CITRATE
     Indication: HEPATITIS C
     Dosage: UNK
     Dates: start: 201812

REACTIONS (4)
  - Product use in unapproved indication [Unknown]
  - Arthralgia [Unknown]
  - Musculoskeletal pain [Unknown]
  - Condition aggravated [Unknown]

NARRATIVE: CASE EVENT DATE: 201812
